FAERS Safety Report 4764511-1 (Version None)
Quarter: 2005Q3

REPORT INFORMATION
  Report Type: 
  Country: None (occurrence: None)
  Receive Date: 20050909
  Receipt Date: 20041105
  Transmission Date: 20060218
  Serious: Yes (Death, Life-Threatening, Hospitalization, Disabling, Other)
  Sender: FDA-Public Use
  Company Number: 2004AP05649

PATIENT
  Age: 23713 Day
  Sex: Female
  Weight: 42 kg

DRUGS (1)
  1. IRESSA [Suspect]
     Indication: NON-SMALL CELL LUNG CANCER STAGE IV
     Route: 048
     Dates: start: 20031022, end: 20041026

REACTIONS (2)
  - PNEUMONIA FUNGAL [None]
  - PNEUMONITIS [None]
